FAERS Safety Report 7808759-8 (Version None)
Quarter: 2011Q4

REPORT INFORMATION
  Report Type: 
  Country: None (occurrence: None)
  Receive Date: 20111012
  Receipt Date: 20111004
  Transmission Date: 20120403
  Serious: Yes (Other)
  Sender: FDA-Public Use
  Company Number: BE-UCBSA-042738

PATIENT
  Sex: Male

DRUGS (1)
  1. VIMPAT [Suspect]

REACTIONS (2)
  - CONDUCTION DISORDER [None]
  - LOSS OF CONSCIOUSNESS [None]
